FAERS Safety Report 4622319-1 (Version None)
Quarter: 2005Q1

REPORT INFORMATION
  Report Type: 
  Country: None (occurrence: None)
  Receive Date: 20050330
  Receipt Date: 20040923
  Transmission Date: 20050727
  Serious: Yes (Other)
  Sender: FDA-Public Use
  Company Number: US-BRISTOL-MYERS SQUIBB COMPANY-12710422

PATIENT
  Age: 70 Year
  Sex: Female

DRUGS (9)
  1. ESTRACE [Suspect]
     Dates: start: 19850101, end: 19950101
  2. PREMARIN [Suspect]
     Dates: start: 19850101, end: 19950101
  3. CYCRIN [Suspect]
     Dates: start: 19850101, end: 19950101
  4. ESTRATEST [Suspect]
     Dates: start: 19850101, end: 19950101
  5. PROVERA [Suspect]
     Dates: start: 19850101, end: 19950101
  6. PREMPRO [Suspect]
     Dates: start: 19950101, end: 20020101
  7. VIVELLE [Suspect]
     Dates: start: 19850101, end: 19950101
  8. MEDROXYPROGESTERONE ACETATE [Suspect]
     Dates: start: 19850101, end: 19950101
  9. CURRETAB [Suspect]
     Dates: start: 19850101, end: 19950101

REACTIONS (2)
  - BREAST CANCER [None]
  - OVARIAN CANCER [None]
